FAERS Safety Report 11941685 (Version 1)
Quarter: 2016Q1

REPORT INFORMATION
  Report Type: Spontaneous
  Country: US (occurrence: US)
  Receive Date: 20160123
  Receipt Date: 20160123
  Transmission Date: 20160526
  Serious: Yes (Death)
  Sender: FDA-Public Use
  Company Number: US-APOTEX-2016AP005661

PATIENT
  Age: 53 Year
  Sex: Female

DRUGS (5)
  1. DULOXETINE HYDROCHLORIDE DELAYED-RELEASE CAPSULES [Suspect]
     Active Substance: DULOXETINE HYDROCHLORIDE
     Route: 048
  2. THYROID PREPARATIONS [Suspect]
     Active Substance: UNSPECIFIED INGREDIENT
     Route: 048
  3. ESCITALOPRAM OXALATE. [Suspect]
     Active Substance: ESCITALOPRAM OXALATE
     Route: 048
  4. CLONAZEPAM TABLETS USP [Suspect]
     Active Substance: CLONAZEPAM
     Route: 048
  5. BACLOFEN. [Suspect]
     Active Substance: BACLOFEN
     Route: 048

REACTIONS (1)
  - Completed suicide [Fatal]
